FAERS Safety Report 5284769-2 (Version None)
Quarter: 2007Q2

REPORT INFORMATION
  Report Type: 
  Country: None (occurrence: None)
  Receive Date: 20070403
  Receipt Date: 20070329
  Transmission Date: 20071010
  Serious: Yes (Other)
  Sender: FDA-Public Use
  Company Number: PT-MERCK-0703PRT00016

PATIENT
  Sex: Female
  Weight: 80 kg

DRUGS (5)
  1. VYTORIN [Suspect]
     Indication: HYPERCHOLESTEROLAEMIA
     Route: 048
     Dates: start: 20070212, end: 20070218
  2. GLUCOSAMINE [Concomitant]
     Route: 065
  3. FOSAMAX [Concomitant]
     Route: 048
  4. CHOLECALCIFEROL [Concomitant]
     Route: 065
  5. ASPIRIN [Concomitant]
     Route: 065

REACTIONS (4)
  - MUCOSAL INFLAMMATION [None]
  - ORAL MUCOSAL EXFOLIATION [None]
  - ORAL PAIN [None]
  - PARAESTHESIA ORAL [None]
